FAERS Safety Report 7729102-9 (Version None)
Quarter: 2011Q3

REPORT INFORMATION
  Report Type: 
  Country: None (occurrence: None)
  Receive Date: 20110906
  Receipt Date: 20110829
  Transmission Date: 20111222
  Serious: Yes (Disabling, Other)
  Sender: FDA-Public Use
  Company Number: GB-GENZYME-CAMP-1001869

PATIENT
  Sex: Female

DRUGS (11)
  1. CYCLOPHOSPHAMIDE [Suspect]
     Indication: WEGENER'S GRANULOMATOSIS
     Dosage: 3 DOSES FORTNIGHTLY
     Route: 042
  2. CAMPATH [Suspect]
     Indication: WEGENER'S GRANULOMATOSIS
     Dosage: UNK
     Route: 065
  3. RITUXIMAB [Suspect]
     Indication: WEGENER'S GRANULOMATOSIS
     Dosage: TWO DOSES
     Route: 065
  4. INFLIXIMAB [Suspect]
     Indication: WEGENER'S GRANULOMATOSIS
     Dosage: UNK
     Route: 065
  5. MYCOPHENOLATE MOFETIL [Suspect]
     Indication: WEGENER'S GRANULOMATOSIS
     Dosage: UNK
     Route: 065
  6. CYCLOSPORINE [Suspect]
     Indication: WEGENER'S GRANULOMATOSIS
     Dosage: UNK
     Route: 065
  7. CYCLOPHOSPHAMIDE [Suspect]
     Dosage: EVERY 3 WEEKS FOR 2-4 DOSES
     Route: 042
  8. CYCLOPHOSPHAMIDE [Suspect]
     Dosage: 1-2 MG/KG/DAY FOR 3-6 MONTHS (SINGLE COURSE)
     Route: 048
  9. METHYLPREDNISOLONE [Suspect]
     Indication: WEGENER'S GRANULOMATOSIS
     Dosage: 500 MG, QDX3
     Route: 042
  10. PREDNISOLONE [Suspect]
     Indication: WEGENER'S GRANULOMATOSIS
     Dosage: STARTING AT 1 MG/KG, TAPERED OVER NEXT 6-12 MONTHS
     Route: 048
  11. AZATHIOPRINE [Suspect]
     Indication: WEGENER'S GRANULOMATOSIS
     Dosage: UNK
     Route: 065

REACTIONS (7)
  - HEARING IMPAIRED [None]
  - OESOPHAGEAL CANDIDIASIS [None]
  - LOWER RESPIRATORY TRACT INFECTION [None]
  - NASAL SEPTUM DISORDER [None]
  - PNEUMOTHORAX [None]
  - BRONCHOSTENOSIS [None]
  - BRONCHIECTASIS [None]
